FAERS Safety Report 12695312 (Version 2)
Quarter: 2016Q3

REPORT INFORMATION
  Report Type: Spontaneous
  Country: US (occurrence: US)
  Receive Date: 20160829
  Receipt Date: 20160916
  Transmission Date: 20161109
  Serious: Yes (Hospitalization, Congenital Anomaly, Other)
  Sender: FDA-Public Use
  Company Number: US-UCBSA-2016032553

PATIENT
  Sex: Female
  Weight: 4 kg

DRUGS (15)
  1. LEVETIRACETAM. [Suspect]
     Active Substance: LEVETIRACETAM
     Indication: SEIZURE
     Dosage: 500 MG, 2X/DAY (BID)
     Route: 064
  2. LEVETIRACETAM. [Suspect]
     Active Substance: LEVETIRACETAM
     Dosage: 750 MG, 3X/DAY (TID)
     Route: 064
  3. LEVETIRACETAM. [Suspect]
     Active Substance: LEVETIRACETAM
     Dosage: UNKNOWN DOSE INITIATED AFTER BIRTH
  4. OXCARBAZEPINE. [Concomitant]
     Active Substance: OXCARBAZEPINE
     Indication: SEIZURE
     Dosage: UNKNOWN
  5. PHENYTOIN. [Concomitant]
     Active Substance: PHENYTOIN
     Indication: SEIZURE
     Dosage: UNK
  6. LEVETIRACETAM. [Suspect]
     Active Substance: LEVETIRACETAM
     Dosage: UNKNOWN DOSE TITRATION
  7. LAMOTRIGINE. [Concomitant]
     Active Substance: LAMOTRIGINE
     Indication: SEIZURE
     Dosage: UNK
  8. LEVETIRACETAM. [Suspect]
     Active Substance: LEVETIRACETAM
     Dosage: 500 MG, 3X/DAY (TID)
     Route: 064
  9. PHENOBARBITAL. [Concomitant]
     Active Substance: PHENOBARBITAL
     Dosage: 6 MG/KG/DAY
  10. LAMOTRIGINE. [Concomitant]
     Active Substance: LAMOTRIGINE
     Dosage: SLOWLY UPTITRATED TO 2 MG/KG/DAY
  11. DIAZEPAM. [Concomitant]
     Active Substance: DIAZEPAM
     Indication: SEIZURE
     Dosage: UNK
     Route: 054
  12. PHENOBARBITAL. [Concomitant]
     Active Substance: PHENOBARBITAL
     Indication: SEIZURE
     Dosage: 20 MG/KG
     Route: 042
  13. OXCARBAZEPINE. [Concomitant]
     Active Substance: OXCARBAZEPINE
     Dosage: TITRATED TO HIGH DOSE (80 MG/KG/DAY)
  14. LEVETIRACETAM. [Suspect]
     Active Substance: LEVETIRACETAM
     Dosage: 60 MG/KG/DAY
  15. INDOMETHACIN. [Concomitant]
     Active Substance: INDOMETHACIN
     Indication: POLYHYDRAMNIOS
     Dosage: UNKNOWN DOSE
     Route: 064

REACTIONS (17)
  - Seizure [Unknown]
  - Tonic convulsion [Unknown]
  - Oxygen saturation decreased [Unknown]
  - Cardiomegaly [Unknown]
  - Foetal macrosomia [Unknown]
  - Nervous system disorder [Unknown]
  - Foetal exposure during pregnancy [Unknown]
  - Deformity of orbit [Unknown]
  - Congenital multiplex arthrogryposis [Unknown]
  - Low set ears [Unknown]
  - High arched palate [Unknown]
  - Tachycardia [Unknown]
  - Hypotonia [Unknown]
  - Joint contracture [Unknown]
  - Generalised oedema [Unknown]
  - Tardive dyskinesia [Unknown]
  - Hand deformity [Unknown]
